FAERS Safety Report 5067808-3 (Version None)
Quarter: 2006Q3

REPORT INFORMATION
  Report Type: 
  Country: None (occurrence: None)
  Receive Date: 20060802
  Receipt Date: 20060728
  Transmission Date: 20061208
  Serious: Yes (Hospitalization)
  Sender: FDA-Public Use
  Company Number: IT-GLAXOSMITHKLINE-B0432818A

PATIENT
  Age: 50 Year
  Sex: Female

DRUGS (6)
  1. TOPOTECAN [Suspect]
     Indication: NEOPLASM MALIGNANT
     Dosage: 2.32MG UNKNOWN
     Dates: start: 20060523
  2. HYCAMTIN [Suspect]
     Indication: DRUG USE FOR UNKNOWN INDICATION
     Route: 042
  3. CARBOPLATIN [Suspect]
     Indication: NEOPLASM MALIGNANT
     Dosage: 595MG UNKNOWN
     Route: 042
     Dates: start: 20060523
  4. FOLIC ACID [Concomitant]
  5. OMEPRAZOLE [Concomitant]
  6. THYROXINE SODIUM [Concomitant]

REACTIONS (4)
  - ANAEMIA [None]
  - CONFUSIONAL STATE [None]
  - NEUTROPENIA [None]
  - THROMBOCYTOPENIA [None]
